FAERS Safety Report 13002545 (Version 4)
Quarter: 2017Q2

REPORT INFORMATION
  Report Type: Spontaneous
  Country: US (occurrence: US)
  Receive Date: 20161206
  Receipt Date: 20170503
  Transmission Date: 20170830
  Serious: No
  Sender: FDA-Public Use
  Company Number: US-AMGEN-USASP2016170149

PATIENT
  Age: 53 Year
  Sex: Male

DRUGS (1)
  1. IMLYGIC [Suspect]
     Active Substance: TALIMOGENE LAHERPAREPVEC
     Indication: PRODUCT USED FOR UNKNOWN INDICATION
     Dosage: UNK, UNK
     Route: 065

REACTIONS (17)
  - Blister [Recovering/Resolving]
  - Fatigue [Recovering/Resolving]
  - Macule [Unknown]
  - Tenderness [Recovering/Resolving]
  - Accidental exposure to product [Unknown]
  - Injury associated with device [Unknown]
  - Rash pustular [Unknown]
  - Herpes virus infection [Unknown]
  - Skin haemorrhage [Unknown]
  - Skin lesion [Not Recovered/Not Resolved]
  - Skin discolouration [Recovering/Resolving]
  - Pruritus [Recovering/Resolving]
  - Scar [Unknown]
  - Nodule [Unknown]
  - Erythema [Unknown]
  - Pain [Recovering/Resolving]
  - Vascular fragility [Unknown]

NARRATIVE: CASE EVENT DATE: 2016
